FAERS Safety Report 16053408 (Version 1)
Quarter: 2019Q1

REPORT INFORMATION
  Report Type: Spontaneous
  Country: FR (occurrence: FR)
  Receive Date: 20190308
  Receipt Date: 20190308
  Transmission Date: 20190418
  Serious: Yes (Other)
  Sender: FDA-Public Use
  Company Number: FR-MYLANLABS-2019M1021221

PATIENT
  Age: 49 Year
  Sex: Female

DRUGS (1)
  1. ZOLPIDEM [Suspect]
     Active Substance: ZOLPIDEM\ZOLPIDEM TARTRATE
     Indication: PRODUCT USED FOR UNKNOWN INDICATION
     Dosage: UNK
     Dates: start: 20170315, end: 20170315

REACTIONS (5)
  - Depressed mood [Not Recovered/Not Resolved]
  - Amnesia [Recovered/Resolved]
  - Aggression [Recovered/Resolved with Sequelae]
  - Chemical submission [Recovered/Resolved]
  - Anxiety [Not Recovered/Not Resolved]

NARRATIVE: CASE EVENT DATE: 20170315
